FAERS Safety Report 10464175 (Version 2)
Quarter: 2014Q4

REPORT INFORMATION
  Report Type: Spontaneous
  Country: CH (occurrence: CH)
  Receive Date: 20140919
  Receipt Date: 20141021
  Transmission Date: 20150528
  Serious: Yes (Hospitalization, Other)
  Sender: FDA-Public Use
  Company Number: CH-AMGEN-CHESP2014070615

PATIENT
  Age: 71 Year
  Sex: Male
  Weight: 83 kg

DRUGS (7)
  1. CALCIMAGON D3 [Concomitant]
     Active Substance: CALCIUM\CHOLECALCIFEROL
     Dosage: UNK
     Route: 048
  2. CIPROFLOXACIN. [Concomitant]
     Active Substance: CIPROFLOXACIN
  3. XGEVA [Suspect]
     Active Substance: DENOSUMAB
     Indication: METASTASES TO BONE
     Dosage: 120 MG, Q4WK
     Route: 065
     Dates: start: 20130326, end: 20140807
  4. LUCRIN [Concomitant]
     Active Substance: LEUPROLIDE ACETATE
  5. ZOLPIDEM [Concomitant]
     Active Substance: ZOLPIDEM\ZOLPIDEM TARTRATE
     Dosage: 10 G, UNK(1X 1/2 /D)
     Route: 048
  6. XGEVA [Suspect]
     Active Substance: DENOSUMAB
     Indication: PROSTATE CANCER METASTATIC
  7. TAMSULOSIN [Concomitant]
     Active Substance: TAMSULOSIN
     Dosage: 0.4 MG, QD
     Route: 048

REACTIONS (6)
  - Syncope [Unknown]
  - Vertigo [Unknown]
  - Hypocalcaemia [Not Recovered/Not Resolved]
  - Nausea [Unknown]
  - Postrenal failure [Unknown]
  - Dizziness [Unknown]

NARRATIVE: CASE EVENT DATE: 20140711
